FAERS Safety Report 19410874 (Version 1)
Quarter: 2021Q2

REPORT INFORMATION
  Report Type: Spontaneous
  Country: US (occurrence: US)
  Receive Date: 20210614
  Receipt Date: 20210614
  Transmission Date: 20210717
  Serious: No
  Sender: FDA-Public Use
  Company Number: US-STRIDES ARCOLAB LIMITED-2020SP006995

PATIENT
  Age: 75 Year
  Sex: Male

DRUGS (1)
  1. ZOLPIDEM [Suspect]
     Active Substance: ZOLPIDEM TARTRATE
     Indication: BRAIN INJURY
     Dosage: 2.5 MILLIGRAM, AT BED TIME
     Route: 065

REACTIONS (1)
  - Off label use [Unknown]
